FAERS Safety Report 5335567-2 (Version None)
Quarter: 2007Q2

REPORT INFORMATION
  Report Type: 
  Country: None (occurrence: None)
  Receive Date: 20070526
  Receipt Date: 20070515
  Transmission Date: 20071010
  Serious: Yes (Death, Hospitalization, Other)
  Sender: FDA-Public Use
  Company Number: US-PFIZER INC-2007040657

PATIENT
  Sex: Male
  Weight: 65.8 kg

DRUGS (7)
  1. ZIPRASIDONE (IM) [Suspect]
     Indication: AGITATION
     Route: 030
     Dates: start: 20070101, end: 20070117
  2. SEROQUEL [Concomitant]
     Route: 048
     Dates: start: 20061201, end: 20070301
  3. ARICEPT [Concomitant]
     Route: 048
     Dates: end: 20070301
  4. NAMENDA [Concomitant]
     Route: 048
     Dates: end: 20070301
  5. ATIVAN [Concomitant]
     Route: 042
     Dates: start: 20070101, end: 20070101
  6. NEXIUM [Concomitant]
     Route: 048
     Dates: start: 20061201, end: 20070301
  7. VITAMIN CAP [Concomitant]
     Route: 048
     Dates: end: 20070401

REACTIONS (6)
  - DEHYDRATION [None]
  - LOCALISED INFECTION [None]
  - PNEUMONIA ASPIRATION [None]
  - PYREXIA [None]
  - SEPSIS [None]
  - UNRESPONSIVE TO STIMULI [None]
